FAERS Safety Report 4599456-3 (Version None)
Quarter: 2005Q1

REPORT INFORMATION
  Report Type: 
  Country: None (occurrence: None)
  Receive Date: 20050303
  Receipt Date: 20050214
  Transmission Date: 20050727
  Serious: Yes (Hospitalization)
  Sender: FDA-Public Use
  Company Number: USA050290719

PATIENT
  Age: 67 Year
  Sex: Male
  Weight: 163 kg

DRUGS (2)
  1. HUMALOG [Suspect]
     Indication: DIABETES MELLITUS
     Dosage: 18 U
  2. HUMULIN N [Suspect]
     Indication: DIABETES MELLITUS
     Dosage: 30 U

REACTIONS (1)
  - LYMPHOEDEMA [None]
